FAERS Safety Report 7512641-3 (Version None)
Quarter: 2011Q2

REPORT INFORMATION
  Report Type: 
  Country: None (occurrence: None)
  Receive Date: 20110531
  Receipt Date: 20110519
  Transmission Date: 20111010
  Serious: Yes (Hospitalization)
  Sender: FDA-Public Use
  Company Number: LU-ASTRAZENECA-2011SE16686

PATIENT
  Sex: Female

DRUGS (3)
  1. DIANE 35 [Concomitant]
     Route: 048
     Dates: start: 20110215, end: 20110306
  2. PRAZEPAM [Concomitant]
     Dosage: 15 DRIPS
     Route: 048
     Dates: start: 20110203, end: 20110309
  3. SEROQUEL [Suspect]
     Indication: PSYCHOTIC DISORDER
     Route: 048
     Dates: start: 20110201, end: 20110307

REACTIONS (1)
  - HEPATITIS TOXIC [None]
